FAERS Safety Report 8031191-1 (Version None)
Quarter: 2012Q1

REPORT INFORMATION
  Report Type: 
  Country: None (occurrence: None)
  Receive Date: 20120105
  Receipt Date: 20111222
  Transmission Date: 20120608
  Serious: Yes (Death, Hospitalization)
  Sender: FDA-Public Use
  Company Number: MPS1-1000619

PATIENT
  Age: 10 Year
  Sex: Male

DRUGS (1)
  1. ALDURAZYME [Suspect]
     Indication: MUCOPOLYSACCHARIDOSIS
     Dosage: 3.5 VIALS, INTRAVENOUS
     Route: 042
     Dates: start: 20080101

REACTIONS (5)
  - CONDITION AGGRAVATED [None]
  - CIRCULATORY COLLAPSE [None]
  - HYPOTHERMIA [None]
  - MALAISE [None]
  - BRONCHITIS CHRONIC [None]
